FAERS Safety Report 8216265-4 (Version None)
Quarter: 2012Q1

REPORT INFORMATION
  Report Type: 
  Country: None (occurrence: None)
  Receive Date: 20120316
  Receipt Date: 20120312
  Transmission Date: 20120608
  Serious: Yes (Death, Hospitalization, Other)
  Sender: FDA-Public Use
  Company Number: PHHY2011FR65910

PATIENT
  Sex: Male
  Weight: 68 kg

DRUGS (6)
  1. RASILEZ HCT [Suspect]
     Indication: HYPERTENSION
     Dosage: 1 DF, QD
     Route: 048
     Dates: start: 20101117, end: 20110701
  2. PREVISCAN [Concomitant]
     Dosage: 0.75 DF, PER DAY
     Route: 048
  3. HYPERIUM [Concomitant]
     Dosage: 10 MG, QD
     Route: 048
  4. OMIX [Concomitant]
     Route: 048
  5. RABEPRAZOLE SODIUM [Concomitant]
     Dosage: 10 MG, QD
     Route: 048
  6. NICARDIPINE HYDROCHLORIDE [Concomitant]
     Dosage: 2 DF
     Route: 048

REACTIONS (8)
  - BONE MARROW FAILURE [None]
  - HAEMORRHAGE [None]
  - MYELODYSPLASTIC SYNDROME TRANSFORMATION [None]
  - BLOOD COUNT ABNORMAL [None]
  - PROSTATIC ADENOMA [None]
  - PLATELET COUNT DECREASED [None]
  - WHITE BLOOD CELL COUNT INCREASED [None]
  - DEATH [None]
